FAERS Safety Report 7117432-3 (Version None)
Quarter: 2010Q4

REPORT INFORMATION
  Report Type: 
  Country: None (occurrence: None)
  Receive Date: 20101122
  Receipt Date: 20101112
  Transmission Date: 20110411
  Serious: Yes (Other)
  Sender: FDA-Public Use
  Company Number: US-PFIZER INC-2010129166

PATIENT
  Sex: Female
  Weight: 65 kg

DRUGS (5)
  1. CHANTIX [Suspect]
     Indication: SMOKING CESSATION THERAPY
     Dosage: 0.5 MG, 1X/DAY
     Route: 048
     Dates: start: 20100927
  2. CHANTIX [Suspect]
     Dosage: 1 MG, 2X/DAY
     Route: 048
     Dates: end: 20101008
  3. ROXICODONE [Concomitant]
     Indication: PAIN
     Dosage: 15 MG, 3X/DAY
     Route: 048
     Dates: start: 20100101
  4. CELEXA [Concomitant]
     Indication: DEPRESSION
     Dosage: 20 MG, 1X/DAY
     Route: 048
  5. VALIUM [Concomitant]
     Indication: MUSCLE RELAXANT THERAPY
     Dosage: 5 MG, 3X/DAY
     Route: 048

REACTIONS (6)
  - DYSPNOEA [None]
  - HYPERSENSITIVITY [None]
  - HYPOAESTHESIA ORAL [None]
  - LIP SWELLING [None]
  - SWOLLEN TONGUE [None]
  - VOMITING [None]
